FAERS Safety Report 20494636 (Version 2)
Quarter: 2022Q1

REPORT INFORMATION
  Report Type: Spontaneous
  Country: CA (occurrence: CA)
  Receive Date: 20220221
  Receipt Date: 20220331
  Transmission Date: 20220424
  Serious: Yes (Other)
  Sender: FDA-Public Use
  Company Number: CA-CELLTRION INC.-2022CA002001

PATIENT

DRUGS (4)
  1. INFLECTRA [Suspect]
     Active Substance: INFLIXIMAB-DYYB
     Indication: Rheumatoid arthritis
     Dosage: 400MG,EVERY 6WEEKS
     Route: 042
     Dates: start: 20190705
  2. INFLECTRA [Suspect]
     Active Substance: INFLIXIMAB-DYYB
     Dosage: 400MG,EVERY 6WEEKS
     Route: 042
     Dates: start: 20211221
  3. INFLECTRA [Suspect]
     Active Substance: INFLIXIMAB-DYYB
     Dosage: 400MG,EVERY 6WEEKS
     Route: 042
     Dates: start: 20220209
  4. METHOTREXATE [Concomitant]
     Active Substance: METHOTREXATE
     Dosage: 2.5MG WEEKLY
     Route: 048

REACTIONS (3)
  - Hypertension [Not Recovered/Not Resolved]
  - Anxiety [Recovered/Resolved]
  - Off label use [Unknown]

NARRATIVE: CASE EVENT DATE: 20220209
